FAERS Safety Report 9281064 (Version 2)
Quarter: 2014Q1

REPORT INFORMATION
  Report Type: Spontaneous
  Country: GB (occurrence: GB)
  Receive Date: 20130509
  Receipt Date: 20140228
  Transmission Date: 20141002
  Serious: Yes (Hospitalization)
  Sender: FDA-Public Use
  Company Number: GB-SANOFI-AVENTIS-2013SA044963

PATIENT
  Age: 49 Year
  Sex: Female

DRUGS (17)
  1. RAMIPRIL [Suspect]
     Indication: PRODUCT USED FOR UNKNOWN INDICATION
     Dosage: 2.5MG*56
     Route: 048
     Dates: start: 20130124, end: 20130124
  2. RAMIPRIL [Suspect]
     Indication: PRODUCT USED FOR UNKNOWN INDICATION
     Route: 065
     Dates: start: 20140206, end: 20140206
  3. FLUOXETINE [Suspect]
     Indication: PRODUCT USED FOR UNKNOWN INDICATION
     Dosage: 20 MG X 56
     Route: 048
     Dates: start: 20130124, end: 20130124
  4. FLUOXETINE [Suspect]
     Indication: PRODUCT USED FOR UNKNOWN INDICATION
     Route: 065
     Dates: start: 20140206, end: 20140206
  5. PARACETAMOL [Suspect]
     Indication: PRODUCT USED FOR UNKNOWN INDICATION
     Dosage: 500 MG X 16
     Route: 048
     Dates: start: 20130124, end: 20130124
  6. CLOPIDOGREL BISULFATE [Suspect]
     Indication: PRODUCT USED FOR UNKNOWN INDICATION
     Dosage: 75 MG X 28
     Route: 048
     Dates: start: 20130124, end: 20130124
  7. CLOPIDOGREL BISULFATE [Suspect]
     Indication: PRODUCT USED FOR UNKNOWN INDICATION
     Route: 065
     Dates: start: 20140206, end: 20140206
  8. FUROSEMIDE [Suspect]
     Indication: PRODUCT USED FOR UNKNOWN INDICATION
     Dosage: 40 MG X 28
     Route: 048
     Dates: start: 20130124, end: 20130124
  9. OLANZAPINE [Suspect]
     Indication: PRODUCT USED FOR UNKNOWN INDICATION
     Route: 065
     Dates: start: 20140206, end: 20140206
  10. BISOPROLOL [Suspect]
     Indication: PRODUCT USED FOR UNKNOWN INDICATION
     Route: 065
     Dates: start: 20140206, end: 20140206
  11. BISOPROLOL [Suspect]
     Indication: PRODUCT USED FOR UNKNOWN INDICATION
     Dosage: 10 MG X 56
     Route: 048
     Dates: start: 20130124, end: 20130124
  12. ASPIRIN [Suspect]
     Indication: PRODUCT USED FOR UNKNOWN INDICATION
     Route: 048
     Dates: start: 20130124, end: 20130124
  13. IBUPROFEN [Suspect]
     Indication: PRODUCT USED FOR UNKNOWN INDICATION
     Dosage: 200 MG X 24
     Route: 048
     Dates: start: 20130124, end: 20130124
  14. ZAPONEX [Suspect]
     Indication: SCHIZOPHRENIA
     Route: 048
     Dates: start: 20041014, end: 20130129
  15. ZAPONEX [Suspect]
     Indication: SCHIZOPHRENIA
     Route: 048
     Dates: start: 20130304, end: 20140206
  16. LANSOPRAZOLE [Concomitant]
     Indication: DYSPEPSIA
     Route: 048
  17. GAVISCON [Concomitant]
     Indication: DYSPEPSIA
     Route: 048

REACTIONS (8)
  - Coma scale abnormal [Unknown]
  - Renal failure acute [Recovered/Resolved]
  - Alanine aminotransferase increased [Recovered/Resolved]
  - Intentional overdose [Unknown]
  - Faecal incontinence [Unknown]
  - Hypercholesterolaemia [Not Recovered/Not Resolved]
  - Agitation [Unknown]
  - Confusional state [Unknown]
